FAERS Safety Report 18223684 (Version 3)
Quarter: 2020Q4

REPORT INFORMATION
  Report Type: Spontaneous
  Country: SE (occurrence: SE)
  Receive Date: 20200902
  Receipt Date: 20201221
  Transmission Date: 20210113
  Serious: Yes (Other)
  Sender: FDA-Public Use
  Company Number: SE-MYLANLABS-2020M1076023

PATIENT
  Age: 80 Year
  Sex: Male

DRUGS (5)
  1. BONDIL 500 MIKROGRAM URETRALSTIFT [Suspect]
     Active Substance: ALPROSTADIL
     Indication: ERECTILE DYSFUNCTION
     Dosage: UNK
  2. ATORBIR [Concomitant]
     Active Substance: ATORVASTATIN
     Dosage: 10 MILLIGRAM
  3. FINASTERIDE TEVA [Concomitant]
     Active Substance: FINASTERIDE
     Dosage: 5 MILLIGRAM
  4. BONDIL 1000 MIKROGRAM URETRALSTIFT [Suspect]
     Active Substance: ALPROSTADIL
     Indication: ERECTILE DYSFUNCTION
     Dosage: 1000 MICROGRAM
     Dates: start: 20200811, end: 20200811
  5. LOSARTAN. [Concomitant]
     Active Substance: LOSARTAN
     Dosage: 50 MILLIGRAM

REACTIONS (1)
  - Drug ineffective [Unknown]

NARRATIVE: CASE EVENT DATE: 20200811
